FAERS Safety Report 7437901-6 (Version None)
Quarter: 2011Q2

REPORT INFORMATION
  Report Type: 
  Country: None (occurrence: None)
  Receive Date: 20110426
  Receipt Date: 20110415
  Transmission Date: 20111010
  Serious: Yes (Disabling)
  Sender: FDA-Public Use
  Company Number: B0713082A

PATIENT
  Sex: Female
  Weight: 50.6 kg

DRUGS (2)
  1. ROPINIROLE [Suspect]
     Indication: PARKINSON'S DISEASE
     Route: 048
     Dates: start: 20110323
  2. MODOPAR [Concomitant]
     Indication: PARKINSON'S DISEASE
     Dosage: 250MG THREE TIMES PER DAY
     Route: 048

REACTIONS (2)
  - CLAVICLE FRACTURE [None]
  - JOINT DISLOCATION [None]
